FAERS Safety Report 19152039 (Version 2)
Quarter: 2021Q2

REPORT INFORMATION
  Report Type: Spontaneous
  Country: US (occurrence: US)
  Receive Date: 20210419
  Receipt Date: 20210624
  Transmission Date: 20210717
  Serious: No
  Sender: FDA-Public Use
  Company Number: US-PFIZER INC-2020290859

PATIENT
  Age: 14 Year
  Sex: Male
  Weight: 32.66 kg

DRUGS (1)
  1. GENOTROPIN [Suspect]
     Active Substance: SOMATROPIN
     Indication: SHORT STATURE
     Dosage: 1.8 MG, DAILY, 7 DAYS A WEEK
     Route: 058
     Dates: start: 20190809

REACTIONS (7)
  - Injection site extravasation [Unknown]
  - Device issue [Unknown]
  - Drug dose omission by device [Unknown]
  - Device use error [Unknown]
  - Device leakage [Unknown]
  - Incorrect dose administered by device [Unknown]
  - Accidental exposure to product [Unknown]
